FAERS Safety Report 6104875-X (Version None)
Quarter: 2009Q1

REPORT INFORMATION
  Report Type: 
  Country: None (occurrence: None)
  Receive Date: 20090306
  Receipt Date: 20090227
  Transmission Date: 20090719
  Serious: Yes (Other)
  Sender: FDA-Public Use
  Company Number: JP-BAYER-200915247GPV

PATIENT
  Age: 55 Year
  Sex: Male

DRUGS (5)
  1. ADALAT [Suspect]
     Indication: HYPERTENSION
     Route: 048
  2. MICARDIS [Suspect]
     Indication: HYPERTENSION
     Route: 048
  3. JUVEL [TOCOPHERYL NICOTINATE] [Suspect]
     Indication: TINNITUS
     Route: 048
  4. ADETPHOS [Suspect]
     Indication: TINNITUS
     Route: 048
  5. BOFU-TSUSHO-SAN [Concomitant]
     Indication: DRUG USE FOR UNKNOWN INDICATION
     Route: 065

REACTIONS (2)
  - HAEMOGLOBIN INCREASED [None]
  - POLYCYTHAEMIA [None]
